FAERS Safety Report 6240933-7 (Version None)
Quarter: 2009Q2

REPORT INFORMATION
  Report Type: 
  Country: None (occurrence: None)
  Receive Date: 20090623
  Receipt Date: 20090622
  Transmission Date: 20091009
  Serious: Yes (Other)
  Sender: FDA-Public Use
  Company Number: A0793030A

PATIENT
  Age: 26 Year
  Sex: Female

DRUGS (3)
  1. ALLI [Suspect]
     Indication: WEIGHT LOSS DIET
     Route: 048
     Dates: start: 20080101, end: 20090601
  2. TOPAMAX [Concomitant]
  3. ALBUTEROL [Concomitant]

REACTIONS (7)
  - ABORTION SPONTANEOUS [None]
  - FATIGUE [None]
  - MALAISE [None]
  - MENSTRUATION DELAYED [None]
  - NAUSEA [None]
  - POLLAKIURIA [None]
  - PRODUCT QUALITY ISSUE [None]
